FAERS Safety Report 9314301 (Version 2)
Quarter: 2015Q2

REPORT INFORMATION
  Report Type: Report from Study
  Country: DE (occurrence: DE)
  Receive Date: 20130529
  Receipt Date: 20150426
  Transmission Date: 20150821
  Serious: Yes (Other)
  Sender: FDA-Public Use
  Company Number: PHHY2013DE052617

PATIENT
  Sex: Male
  Weight: 85 kg

DRUGS (12)
  1. FORADIL [Suspect]
     Active Substance: FORMOTEROL FUMARATE
     Indication: CHRONIC OBSTRUCTIVE PULMONARY DISEASE
     Dosage: 12 UG, UNK
     Route: 065
  2. RAMIPRIL AL [Concomitant]
     Indication: PRODUCT USED FOR UNKNOWN INDICATION
     Dosage: 2.5 MG, UNK
     Route: 065
  3. RAMIPRIL AL [Concomitant]
     Dosage: 5 MG, UNK
     Route: 065
  4. ASS AL [Concomitant]
     Indication: PRODUCT USED FOR UNKNOWN INDICATION
     Route: 065
  5. RAMIPRIL AL [Concomitant]
     Dosage: 10 MG, UNK
     Route: 065
  6. SALBU EASYHALER [Concomitant]
     Indication: PRODUCT USED FOR UNKNOWN INDICATION
     Dosage: 0.1 MG, UNK
     Route: 065
  7. SALBU EASYHALER [Concomitant]
     Dosage: 0.2 MG, UNK
     Route: 065
  8. GLYCOPYRRONIUM BROMIDE [Suspect]
     Active Substance: GLYCOPYRRONIUM
     Indication: CHRONIC OBSTRUCTIVE PULMONARY DISEASE
     Dosage: 44 UG, QD
     Route: 055
     Dates: start: 20130131, end: 20130319
  9. CARVEDILOL AL [Concomitant]
     Dosage: 12.5 MG, UNK
     Route: 065
  10. CARVEDILOL AL [Concomitant]
     Indication: PRODUCT USED FOR UNKNOWN INDICATION
     Dosage: 3.125 MG, UNK
     Route: 065
  11. CARVEDILOL AL [Concomitant]
     Dosage: 6.25 MG, UNK
     Route: 065
  12. CARVEDILOL AL [Concomitant]
     Dosage: 25 MG, UNK
     Route: 065

REACTIONS (4)
  - Hypertensive crisis [Recovered/Resolved]
  - Dizziness [Recovered/Resolved]
  - Blood pressure systolic increased [Recovered/Resolved]
  - Dysphonia [Recovered/Resolved]

NARRATIVE: CASE EVENT DATE: 20130319
